APPROVED DRUG PRODUCT: NORMIFLO
Active Ingredient: ARDEPARIN SODIUM
Strength: 10,000 UNITS/0.5ML **Federal Register determination that product was not discontinued or withdrawn for safety or effectiveness reasons**
Dosage Form/Route: INJECTABLE;INJECTION
Application: N020227 | Product #001
Applicant: PHARMACIA AND UPJOHN CO
Approved: May 23, 1997 | RLD: Yes | RS: No | Type: DISCN